FAERS Safety Report 14119927 (Version 1)
Quarter: 2017Q4

REPORT INFORMATION
  Report Type: Spontaneous
  Country: US (occurrence: US)
  Receive Date: 20171024
  Receipt Date: 20171024
  Transmission Date: 20180321
  Serious: Yes (Death, Other)
  Sender: FDA-Public Use
  Company Number: US-GLAXOSMITHKLINE-US2017GSK162566

PATIENT
  Age: 66 Year
  Sex: Male

DRUGS (1)
  1. NUCALA [Suspect]
     Active Substance: MEPOLIZUMAB
     Indication: PRODUCT USED FOR UNKNOWN INDICATION
     Dosage: UNK
     Route: 042
     Dates: start: 20170914

REACTIONS (5)
  - Coronary artery disease [Unknown]
  - Arteriosclerosis [Unknown]
  - Myocardial infarction [Fatal]
  - Chest pain [Unknown]
  - Emergency care [Unknown]

NARRATIVE: CASE EVENT DATE: 20170930
